FAERS Safety Report 8465081-7 (Version None)
Quarter: 2012Q2

REPORT INFORMATION
  Report Type: 
  Country: None (occurrence: None)
  Receive Date: 20120626
  Receipt Date: 20120620
  Transmission Date: 20120825
  Serious: Yes (Life-Threatening)
  Sender: FDA-Public Use
  Company Number: CH-ASTRAZENECA-2012SE30626

PATIENT
  Age: 25 Year
  Sex: Male

DRUGS (11)
  1. ESCITALOPRAM [Suspect]
     Indication: DEPRESSION
     Route: 048
     Dates: start: 20111215
  2. RISPERDAL [Suspect]
     Indication: DEPRESSION
     Route: 048
     Dates: start: 20120126, end: 20120208
  3. RISPERDAL [Suspect]
     Route: 048
     Dates: start: 20120218, end: 20120306
  4. SEROQUEL [Suspect]
     Route: 048
     Dates: start: 20120306, end: 20120306
  5. RISPERDAL [Suspect]
     Route: 048
     Dates: start: 20120320, end: 20120328
  6. LORAZEPAM [Suspect]
     Route: 048
     Dates: start: 20120305, end: 20120305
  7. LORAZEPAM [Suspect]
     Route: 048
     Dates: start: 20120309, end: 20120309
  8. RISPERDAL [Suspect]
     Route: 048
     Dates: start: 20120307, end: 20120319
  9. LORAZEPAM [Suspect]
     Route: 048
     Dates: start: 20120308, end: 20120308
  10. RISPERDAL [Suspect]
     Route: 048
     Dates: start: 20120209, end: 20120217
  11. LORAZEPAM [Suspect]
     Route: 048
     Dates: start: 20120310, end: 20120329

REACTIONS (2)
  - SUICIDE ATTEMPT [None]
  - JOINT INJURY [None]
